FAERS Safety Report 5772947-5 (Version None)
Quarter: 2008Q2

REPORT INFORMATION
  Report Type: 
  Country: None (occurrence: None)
  Receive Date: 20080613
  Receipt Date: 20080602
  Transmission Date: 20081010
  Serious: Yes (Hospitalization)
  Sender: FDA-Public Use
  Company Number: DE-PFIZER INC-2008047253

PATIENT
  Sex: Female

DRUGS (5)
  1. LYRICA [Suspect]
     Indication: NEUROPATHY PERIPHERAL
     Route: 048
  2. AMITRIPTYLINE HCL [Concomitant]
  3. PANTOPRAZOLE SODIUM [Concomitant]
  4. NALOXONE/OXYCODONE [Concomitant]
  5. NOVALDIN INJ [Concomitant]

REACTIONS (6)
  - ARTHROPATHY [None]
  - BLOOD CREATINE PHOSPHOKINASE INCREASED [None]
  - HEPATIC ENZYME INCREASED [None]
  - INFLAMMATION [None]
  - PERICARDIAL EFFUSION [None]
  - PLEURAL EFFUSION [None]
